FAERS Safety Report 9996845 (Version 1)
Quarter: 2014Q1

REPORT INFORMATION
  Report Type: Spontaneous
  Country: US (occurrence: US)
  Receive Date: 20140311
  Receipt Date: 20140311
  Transmission Date: 20141002
  Serious: No
  Sender: FDA-Public Use
  Company Number: US-GLAXOSMITHKLINE-A1031070A

PATIENT
  Age: 66 Year
  Sex: Male

DRUGS (1)
  1. NICORETTE FRESHMINT 4MG [Suspect]
     Indication: NICOTINE DEPENDENCE
     Dates: start: 20130703

REACTIONS (3)
  - Pain in jaw [Not Recovered/Not Resolved]
  - Intentional drug misuse [Not Recovered/Not Resolved]
  - Product quality issue [Unknown]
